FAERS Safety Report 10259932 (Version 1)
Quarter: 2014Q2

REPORT INFORMATION
  Report Type: Spontaneous
  Country: US (occurrence: US)
  Receive Date: 20140625
  Receipt Date: 20140625
  Transmission Date: 20141212
  Serious: No
  Sender: FDA-Public Use
  Company Number: US-B.I. PHARMACEUTICALS,INC./RIDGEFIELD-2014-BI-27450BP

PATIENT
  Age: 7 Decade
  Sex: Female

DRUGS (2)
  1. SPIRIVA [Suspect]
     Indication: ASTHMA
     Dosage: 36 MCG
     Route: 050
     Dates: start: 2013
  2. BROVANA [Concomitant]
     Indication: ASTHMA
     Route: 055

REACTIONS (2)
  - Wrong technique in drug usage process [Unknown]
  - Off label use [Unknown]
